FAERS Safety Report 21533509 (Version 3)
Quarter: 2022Q4

REPORT INFORMATION
  Report Type: Report from Study
  Country: BE (occurrence: BE)
  Receive Date: 20221101
  Receipt Date: 20221212
  Transmission Date: 20230112
  Serious: Yes (Hospitalization)
  Sender: FDA-Public Use
  Company Number: BE-BIOGEN-2022BI01165315

PATIENT
  Age: 50 Year
  Sex: Male
  Weight: 92 kg

DRUGS (4)
  1. TYSABRI [Suspect]
     Active Substance: NATALIZUMAB
     Indication: Relapsing-remitting multiple sclerosis
     Route: 050
     Dates: start: 20120710
  2. TYSABRI [Suspect]
     Active Substance: NATALIZUMAB
     Dosage: 15ML - 20MG/ML
     Route: 050
     Dates: start: 201301
  3. METFORMIN HYDROCHLORIDE [Concomitant]
     Active Substance: METFORMIN HYDROCHLORIDE
     Indication: Product used for unknown indication
     Dosage: 1/2 TAB
     Route: 050
  4. TELMISARTAN [Concomitant]
     Active Substance: TELMISARTAN
     Indication: Product used for unknown indication
     Dosage: 1/2 TAB
     Route: 050

REACTIONS (1)
  - Facial paresis [Recovered/Resolved]

NARRATIVE: CASE EVENT DATE: 20170101
